FAERS Safety Report 4972018-1 (Version None)
Quarter: 2006Q2

REPORT INFORMATION
  Report Type: 
  Country: None (occurrence: None)
  Receive Date: 20060413
  Receipt Date: 20060404
  Transmission Date: 20061013
  Serious: Yes (Hospitalization)
  Sender: FDA-Public Use
  Company Number: PHEH2006US04540

PATIENT
  Age: 75 Year
  Sex: Male

DRUGS (1)
  1. LOTREL [Suspect]
     Indication: BLOOD PRESSURE INCREASED
     Dates: start: 20000101, end: 20060201

REACTIONS (2)
  - BLOOD POTASSIUM DECREASED [None]
  - BLOOD SODIUM DECREASED [None]
